FAERS Safety Report 20026469 (Version 1)
Quarter: 2021Q4

REPORT INFORMATION
  Report Type: Spontaneous
  Country: US (occurrence: US)
  Receive Date: 20211102
  Receipt Date: 20211102
  Transmission Date: 20220303
  Serious: No
  Sender: FDA-Public Use
  Company Number: US-BRISTOL-MYERS SQUIBB COMPANY-BMS-2021-114410

PATIENT
  Age: 85 Year
  Sex: Female

DRUGS (3)
  1. ELIQUIS [Suspect]
     Active Substance: APIXABAN
     Indication: Product used for unknown indication
     Dosage: 5 MILLIGRAM, BID
     Route: 048
  2. ELIQUIS [Suspect]
     Active Substance: APIXABAN
     Dosage: CUTTING THE 5MG TABLETS IN HALF
     Route: 048
  3. ELIQUIS [Suspect]
     Active Substance: APIXABAN
     Dosage: 2.5 MG TWO TABLETS TWICE DAILY
     Route: 048

REACTIONS (1)
  - Treatment noncompliance [Unknown]
